FAERS Safety Report 5296602-3 (Version None)
Quarter: 2007Q2

REPORT INFORMATION
  Report Type: 
  Country: None (occurrence: None)
  Receive Date: 20070413
  Receipt Date: 20070402
  Transmission Date: 20071010
  Serious: Yes (Hospitalization)
  Sender: FDA-Public Use
  Company Number: US-SHR-US-2007-009268

PATIENT
  Age: 44 Year
  Sex: Female
  Weight: 48.073 kg

DRUGS (11)
  1. BETASERON [Suspect]
     Indication: SECONDARY PROGRESSIVE MULTIPLE SCLEROSIS
     Dosage: 8 MIU, EVERY 2D
     Route: 058
     Dates: start: 20060714
  2. BETASERON [Suspect]
     Dosage: 8 MIU, EVERY 2D
     Route: 058
     Dates: start: 20070101
  3. THIAMINE HCL [Concomitant]
  4. VITAMIN B-12 [Concomitant]
  5. TYLENOL W/ CODEINE NO. 3 [Concomitant]
     Dosage: UNK, AS REQ'D
  6. ASPIRIN [Concomitant]
     Dosage: UNK, 1X/DAY
  7. CORTICOSTEROID NOS [Concomitant]
     Dates: start: 20070201
  8. BACLOFEN [Concomitant]
     Dosage: 10 MG, 3X/DAY
     Dates: start: 20070101
  9. PROZAC [Concomitant]
     Indication: DEPRESSION
     Dosage: 40 MG/D, UNK
     Dates: start: 20050101
  10. FOLIC ACID [Concomitant]
     Indication: SUPPLEMENTATION THERAPY
     Dosage: 1 MG/D, UNK
     Dates: start: 20061101
  11. NEURONTIN [Concomitant]
     Indication: NEUROPATHY
     Dosage: 300 MG, 3X/DAY
     Dates: start: 20070101

REACTIONS (4)
  - ASTHENIA [None]
  - INJECTION SITE ABSCESS [None]
  - MUSCLE SPASMS [None]
  - MUSCULOSKELETAL STIFFNESS [None]
